FAERS Safety Report 7104420-6 (Version None)
Quarter: 2010Q4

REPORT INFORMATION
  Report Type: 
  Country: None (occurrence: None)
  Receive Date: 20101116
  Receipt Date: 20101103
  Transmission Date: 20110411
  Serious: Yes (Other)
  Sender: FDA-Public Use
  Company Number: US-RB-014981-10

PATIENT
  Sex: Female

DRUGS (1)
  1. MUCINEX DM [Suspect]
     Route: 048

REACTIONS (3)
  - BLOOD PRESSURE INCREASED [None]
  - FLUSHING [None]
  - PALPITATIONS [None]
